FAERS Safety Report 7360984-9 (Version None)
Quarter: 2011Q1

REPORT INFORMATION
  Report Type: 
  Country: None (occurrence: None)
  Receive Date: 20110318
  Receipt Date: 20101116
  Transmission Date: 20110831
  Serious: Yes (Life-Threatening, Hospitalization)
  Sender: FDA-Public Use
  Company Number: GB-BAYER-201047747GPV

PATIENT
  Age: 59 Year
  Sex: Male

DRUGS (2)
  1. NAPROSYN [Suspect]
     Indication: PAIN
     Dosage: DAILY DOSE 1000 MG
     Route: 048
     Dates: start: 20100118, end: 20100202
  2. ASPIRIN [Suspect]
     Indication: ROUTINE HEALTH MAINTENANCE
     Dosage: 325 MG (DAILY DOSE), , ORAL
     Route: 048
     Dates: start: 20091111, end: 20100118

REACTIONS (3)
  - TACHYCARDIA [None]
  - DUODENAL ULCER HAEMORRHAGE [None]
  - HYPOTENSION [None]
